FAERS Safety Report 5852484-X (Version None)
Quarter: 2008Q3

REPORT INFORMATION
  Report Type: 
  Country: None (occurrence: None)
  Receive Date: 20080820
  Receipt Date: 20080820
  Transmission Date: 20090109
  Serious: Yes (Life-Threatening, Hospitalization, Disabling)
  Sender: FDA-Public Use
  Company Number: None

PATIENT
  Age: 56 Year
  Sex: Female
  Weight: 68.9467 kg

DRUGS (1)
  1. CELEBREX [Suspect]
     Dosage: 1 CAPSULE 2 X DAY
     Dates: start: 20050212, end: 20080430

REACTIONS (6)
  - FAECAL INCONTINENCE [None]
  - PHARYNGEAL OEDEMA [None]
  - PRURITUS [None]
  - SWELLING FACE [None]
  - VISUAL ACUITY REDUCED [None]
  - VOMITING [None]
